FAERS Safety Report 4835912-8 (Version None)
Quarter: 2005Q4

REPORT INFORMATION
  Report Type: 
  Country: None (occurrence: None)
  Receive Date: 20051118
  Receipt Date: 20051109
  Transmission Date: 20060501
  Serious: Yes (Hospitalization, Disabling)
  Sender: FDA-Public Use
  Company Number: 2005139229

PATIENT
  Sex: Male
  Weight: 68.0396 kg

DRUGS (10)
  1. LIPITOR [Suspect]
     Indication: BLOOD CHOLESTEROL INCREASED
     Dosage: 20 MG (20 MG, 1 IN 1 D)
  2. ALDACTONE [Concomitant]
  3. LANOXIN [Concomitant]
  4. FUROSEMIDE [Concomitant]
  5. COREG [Concomitant]
  6. PRINIVIL [Concomitant]
  7. NEXIUM [Concomitant]
  8. TRAZODONE HCL [Concomitant]
  9. WELLBUTRIN [Concomitant]
  10. ASPIRIN [Concomitant]

REACTIONS (9)
  - BLOOD CHOLESTEROL INCREASED [None]
  - CARDIAC DISORDER [None]
  - CARDIAC VALVE DISEASE [None]
  - CARDIOMEGALY [None]
  - CORONARY ARTERY OCCLUSION [None]
  - ECONOMIC PROBLEM [None]
  - LOW DENSITY LIPOPROTEIN INCREASED [None]
  - SILENT MYOCARDIAL INFARCTION [None]
  - TREATMENT NONCOMPLIANCE [None]
